FAERS Safety Report 7904172-3 (Version None)
Quarter: 2011Q4

REPORT INFORMATION
  Report Type: 
  Country: None (occurrence: None)
  Receive Date: 20111109
  Receipt Date: 20111107
  Transmission Date: 20120403
  Serious: Yes (Other)
  Sender: FDA-Public Use
  Company Number: BR-PFIZER INC-2011262456

PATIENT
  Age: 53 Year
  Sex: Male
  Weight: 88 kg

DRUGS (8)
  1. ASPIRIN [Suspect]
     Dosage: 100 MG, 1X/DAY
  2. ATORVASTATIN CALCIUM [Suspect]
     Dosage: 20 MG, UNK
  3. NPH INSULIN [Suspect]
     Dosage: 40 IU, 1X/DAY
     Route: 058
  4. AMLODIPINE BESYLATE [Suspect]
     Dosage: 5 MG, 1X/DAY
  5. EXFORGE [Suspect]
     Indication: HYPERTENSION
     Dosage: 320/5MG, 1X/DAY
  6. CAPTOPRIL [Suspect]
     Dosage: 25 MG, 3X/DAY
  7. METFORMIN HCL [Suspect]
     Indication: DIABETES MELLITUS
     Dosage: 500 MG, 3X/DAY
  8. SIMVASTATIN [Suspect]
     Dosage: 20 MG, 1X/DAY

REACTIONS (7)
  - RENAL FAILURE [None]
  - DYSLIPIDAEMIA [None]
  - OBESITY [None]
  - MICROALBUMINURIA [None]
  - HYPERTENSION [None]
  - DIABETES MELLITUS [None]
  - MYOCARDIAL ISCHAEMIA [None]
